FAERS Safety Report 23535632 (Version 2)
Quarter: 2024Q4

REPORT INFORMATION
  Report Type: Report from Study
  Country: US (occurrence: US)
  Receive Date: 20240218
  Receipt Date: 20241230
  Transmission Date: 20250115
  Serious: Yes (Other)
  Sender: ABBVIE
  Company Number: US-ABBVIE-5641328

PATIENT
  Sex: Male

DRUGS (1)
  1. MAVYRET [Suspect]
     Active Substance: GLECAPREVIR\PIBRENTASVIR
     Indication: Product used for unknown indication
     Route: 048
     Dates: start: 20231001

REACTIONS (1)
  - Rotator cuff syndrome [Recovered/Resolved]
